FAERS Safety Report 25344594 (Version 1)
Quarter: 2025Q2

REPORT INFORMATION
  Report Type: Spontaneous
  Country: CN (occurrence: CN)
  Receive Date: 20250522
  Receipt Date: 20250522
  Transmission Date: 20250717
  Serious: Yes (Hospitalization, Other)
  Sender: ALEXION PHARMACEUTICALS
  Company Number: CN-ASTRAZENECA-202505CHN015374CN

PATIENT
  Age: 81 Year
  Weight: 56 kg

DRUGS (3)
  1. DAPAGLIFLOZIN [Suspect]
     Active Substance: DAPAGLIFLOZIN
     Indication: Blood glucose decreased
     Dosage: 10 MILLIGRAM, QD
  2. ACARBOSE [Concomitant]
     Active Substance: ACARBOSE
     Indication: Hypoglycaemia
     Route: 065
  3. METFORMIN HYDROCHLORIDE [Concomitant]
     Active Substance: METFORMIN HYDROCHLORIDE
     Indication: Hypoglycaemia
     Route: 065

REACTIONS (11)
  - Asthenia [Recovering/Resolving]
  - Loss of consciousness [Unknown]
  - Limb discomfort [Unknown]
  - Speech disorder [Unknown]
  - Walking disability [Unknown]
  - Temperature intolerance [Unknown]
  - Pyrexia [Unknown]
  - Dyspnoea [Unknown]
  - Vomiting [Unknown]
  - Abdominal pain [Unknown]
  - Diarrhoea [Unknown]
